FAERS Safety Report 15112129 (Version 2)
Quarter: 2018Q3

REPORT INFORMATION
  Report Type: Report from Study
  Country: CN (occurrence: CN)
  Receive Date: 20180705
  Receipt Date: 20180710
  Transmission Date: 20181010
  Serious: Yes (Other)
  Sender: FDA-Public Use
  Company Number: CN-GUERBET-CN-20180022

PATIENT

DRUGS (7)
  1. SORAFENIB [Concomitant]
     Active Substance: SORAFENIB
     Indication: HEPATOCELLULAR CARCINOMA
     Route: 048
  2. LIDOCAINE 2% [Concomitant]
     Active Substance: LIDOCAINE
     Indication: LOCAL ANAESTHESIA
     Dosage: 10 TO 15 MILLILITERS
     Route: 065
  3. LIPIODOL [Suspect]
     Active Substance: ETHIODIZED OIL
     Indication: TRANSCATHETER ARTERIAL CHEMOEMBOLISATION
     Dosage: BETWEEN 5 AND 20 MILLILITERS
     Route: 013
  4. LOBAPLATIN [Concomitant]
     Active Substance: LOBAPLATIN
     Indication: TRANSCATHETER ARTERIAL CHEMOEMBOLISATION
     Dosage: 20 TO 50 MILLIGRAMS DEPENDING ON THE PATIENT BODY WEIGHT
     Route: 065
  5. POLYVINYL ALCOHOL [Concomitant]
     Active Substance: POLYVINYL ALCOHOL
     Indication: TRANSCATHETER ARTERIAL CHEMOEMBOLISATION
     Route: 013
  6. MEPERIDINE [Concomitant]
     Active Substance: MEPERIDINE
     Indication: ANALGESIC THERAPY
     Dosage: 50 TO 100 MILLIGRAMS
     Route: 065
  7. DOXORUBICIN HYDROCHLORIDE. [Concomitant]
     Active Substance: DOXORUBICIN HYDROCHLORIDE
     Indication: TRANSCATHETER ARTERIAL CHEMOEMBOLISATION
     Dosage: 20 TO 60 MILLIGRAMS
     Route: 013

REACTIONS (2)
  - Portal vein thrombosis [Recovered/Resolved]
  - Product use in unapproved indication [Recovered/Resolved]
